FAERS Safety Report 9461221 (Version 1)
Quarter: 2013Q3

REPORT INFORMATION
  Report Type: Spontaneous
  Country: US (occurrence: None)
  Receive Date: 20130814
  Receipt Date: 20130814
  Transmission Date: 20140515
  Serious: Yes (Hospitalization, Disabling, Other)
  Sender: FDA-Public Use
  Company Number: None

PATIENT
  Age: 80 Year
  Sex: Female
  Weight: 77.11 kg

DRUGS (9)
  1. BLOOD THINNER (XARELTO) RIVAROXABAN [Suspect]
     Indication: SURGERY
     Dates: start: 20130528, end: 20130608
  2. HYDROCORTISONE [Concomitant]
  3. FLUDROCORTISONE [Concomitant]
  4. VIT C [Concomitant]
  5. VIT D [Concomitant]
  6. CALCIUM CITRATE [Concomitant]
  7. MULTI VIT [Concomitant]
  8. MAGNESIUM [Concomitant]
  9. POTASSIUM [Concomitant]

REACTIONS (2)
  - Adrenal haemorrhage [None]
  - Adrenal insufficiency [None]
